FAERS Safety Report 6733891-X (Version None)
Quarter: 2010Q2

REPORT INFORMATION
  Report Type: 
  Country: None (occurrence: None)
  Receive Date: 20100520
  Receipt Date: 20100514
  Transmission Date: 20101027
  Serious: Yes (Death, Hospitalization)
  Sender: FDA-Public Use
  Company Number: US-ROCHE-699900

PATIENT
  Sex: Female

DRUGS (1)
  1. CAPECITABINE [Suspect]
     Route: 065

REACTIONS (1)
  - MALIGNANT NEOPLASM PROGRESSION [None]
